FAERS Safety Report 8803440 (Version 1)
Quarter: 2012Q4

REPORT INFORMATION
  Report Type: 
  Country: US (occurrence: US)
  Receive Date: 20120924
  Receipt Date: 20120924
  Transmission Date: 20130627
  Serious: No
  Sender: FDA-Public Use
  Company Number: US-009507513-1209USA000504

PATIENT
  Age: 53 Year
  Sex: Male
  Weight: 83.9 kg

DRUGS (8)
  1. VICTRELIS [Suspect]
     Indication: HEPATITIS C
     Dosage: 800 mg, q8h
     Route: 048
     Dates: start: 20120803
  2. REBETOL [Suspect]
     Indication: HEPATITIS C
     Dosage: UNK
     Route: 048
  3. PEGASYS [Concomitant]
     Indication: HEPATITIS C
     Dosage: UNK
  4. ALDACTONE TABLETS [Concomitant]
  5. CORGARD [Concomitant]
  6. LACTULOSE [Concomitant]
  7. VITAMINS (UNSPECIFIED) [Concomitant]
  8. THIAMINE [Concomitant]

REACTIONS (1)
  - Red blood cell count decreased [Not Recovered/Not Resolved]
